FAERS Safety Report 8438265-1 (Version None)
Quarter: 2012Q2

REPORT INFORMATION
  Report Type: 
  Country: None (occurrence: None)
  Receive Date: 20120614
  Receipt Date: 20120612
  Transmission Date: 20120825
  Serious: Yes (Other)
  Sender: FDA-Public Use
  Company Number: PHHY2012TR050338

PATIENT
  Age: 59 Year
  Sex: Male

DRUGS (7)
  1. OXALIPLATIN [Concomitant]
     Indication: RECTAL CANCER
     Dosage: 85 MG/M2
     Route: 042
  2. FLUOROURACIL [Suspect]
     Indication: RECTAL CANCER
     Dosage: 425 MG/M2,
  3. LEUCOVORIN CALCIUM [Concomitant]
     Dosage: 200 MG/M2,
     Route: 042
  4. FLUOROURACIL [Suspect]
     Dosage: 500 MG
     Route: 042
  5. FLUOROURACIL [Suspect]
     Dosage: 400 MG/M2
  6. LEUCOVORIN CALCIUM [Concomitant]
     Dosage: 150 MG/M2
  7. LEUCOVORIN CALCIUM [Concomitant]
     Indication: RECTAL CANCER
     Dosage: 20 MG/M2

REACTIONS (10)
  - MEMORY IMPAIRMENT [None]
  - DIARRHOEA [None]
  - INCOHERENT [None]
  - NAUSEA [None]
  - AMMONIA INCREASED [None]
  - DISORIENTATION [None]
  - CONFUSIONAL STATE [None]
  - ENCEPHALOPATHY [None]
  - VOMITING [None]
  - AMNESIA [None]
